FAERS Safety Report 5255617-1 (Version None)
Quarter: 2007Q1

REPORT INFORMATION
  Report Type: 
  Country: None (occurrence: None)
  Receive Date: 20061201
  Receipt Date: 20060919
  Transmission Date: 20070707
  Serious: No
  Sender: FDA-Public Use
  Company Number: 2006MP001066

PATIENT
  Age: 67 Year

DRUGS (1)
  1. DACOGEN [Suspect]
     Indication: REFRACTORY ANAEMIA WITH AN EXCESS OF BLASTS
     Dosage: 20 MG/M**2; QD; IV
     Route: 042
     Dates: start: 20060801, end: 20060901

REACTIONS (2)
  - OFF LABEL USE [None]
  - PANCYTOPENIA [None]
